FAERS Safety Report 5137525-X (Version None)
Quarter: 2006Q4

REPORT INFORMATION
  Report Type: 
  Country: None (occurrence: None)
  Receive Date: 20061030
  Receipt Date: 20051115
  Transmission Date: 20070319
  Serious: No
  Sender: FDA-Public Use
  Company Number: US-GLAXOSMITHKLINE-A0582378A

PATIENT
  Sex: Female

DRUGS (11)
  1. ADVAIR HFA [Suspect]
     Indication: ASTHMA
     Dosage: 1PUFF TWICE PER DAY
     Route: 055
  2. NEXIUM [Concomitant]
  3. SINGULAIR [Concomitant]
  4. LISINOPRIL AND HYDROCHLOROTHIAZIDE [Concomitant]
  5. ZETIA [Concomitant]
  6. AVANDIA [Concomitant]
  7. METFORMIN HCL [Concomitant]
  8. GLIPIZIDE [Concomitant]
  9. LEVOTHYROXINE SODIUM [Concomitant]
  10. FLONASE [Concomitant]
  11. ALLEGRA [Concomitant]

REACTIONS (1)
  - OESOPHAGEAL CANDIDIASIS [None]
